FAERS Safety Report 7674018-X (Version None)
Quarter: 2011Q3

REPORT INFORMATION
  Report Type: 
  Country: None (occurrence: None)
  Receive Date: 20110808
  Receipt Date: 20110729
  Transmission Date: 20111222
  Serious: Yes (Hospitalization)
  Sender: FDA-Public Use
  Company Number: 2010002662

PATIENT
  Age: 73 Year
  Sex: Male

DRUGS (1)
  1. TARCEVA [Suspect]
     Indication: LUNG CARCINOMA CELL TYPE UNSPECIFIED STAGE 0
     Dosage: 150 MG, UID/QD, ORAL ; ORAL ; 1 DF, Q3D, ORAL
     Route: 048
     Dates: start: 20100629

REACTIONS (4)
  - NAIL INFECTION [None]
  - ACNE [None]
  - DRY SKIN [None]
  - RASH [None]
